FAERS Safety Report 22858566 (Version 2)
Quarter: 2024Q4

REPORT INFORMATION
  Report Type: Report from Study
  Country: AE (occurrence: AE)
  Receive Date: 20230824
  Receipt Date: 20241114
  Transmission Date: 20250114
  Serious: Yes (Other)
  Sender: ROCHE
  Company Number: AE-ROCHE-3391883

PATIENT
  Age: 3 Year
  Sex: Female

DRUGS (1)
  1. EVRYSDI [Suspect]
     Active Substance: RISDIPLAM
     Indication: Spinal muscular atrophy
     Route: 048
     Dates: start: 20220929

REACTIONS (4)
  - Paralysis [Unknown]
  - Scoliosis [Unknown]
  - Joint range of motion decreased [Unknown]
  - Atrophy [Unknown]
